FAERS Safety Report 6697600-5 (Version None)
Quarter: 2010Q2

REPORT INFORMATION
  Report Type: 
  Country: None (occurrence: None)
  Receive Date: 20100422
  Receipt Date: 20100407
  Transmission Date: 20101027
  Serious: Yes (Hospitalization)
  Sender: FDA-Public Use
  Company Number: 2010001287

PATIENT
  Age: 78 Year
  Sex: Female

DRUGS (2)
  1. ERLOTINIB            (ERLOTINIB) (TABLET) (ERLOTINIB) [Suspect]
     Indication: ADENOCARCINOMA PANCREAS
     Dosage: (100 MG, QD), ORAL
     Route: 048
     Dates: start: 20100121, end: 20100325
  2. GEMCITABINE [Suspect]
     Indication: ADENOCARCINOMA PANCREAS
     Dosage: (1000 MG/M2, 3 PER 28 DAYS), INTRAVENOUS
     Route: 042
     Dates: start: 20100121

REACTIONS (12)
  - ANAEMIA [None]
  - DECREASED APPETITE [None]
  - DEEP VEIN THROMBOSIS [None]
  - DIARRHOEA [None]
  - DUODENAL ULCER [None]
  - GASTROINTESTINAL HAEMORRHAGE [None]
  - HAEMORRHAGE [None]
  - NAIL DISORDER [None]
  - NAUSEA [None]
  - OEDEMA PERIPHERAL [None]
  - PAIN IN EXTREMITY [None]
  - PROTHROMBIN TIME PROLONGED [None]
